FAERS Safety Report 8806690 (Version 2)
Quarter: 2012Q4

REPORT INFORMATION
  Report Type: Spontaneous
  Country: DE (occurrence: None)
  Receive Date: 20120919
  Receipt Date: 20121011
  Transmission Date: 20130627
  Serious: Yes (Other)
  Sender: FDA-Public Use
  Company Number: FK201202654

PATIENT
  Age: 48 Year
  Sex: Female
  Weight: 38 kg

DRUGS (2)
  1. PACLITAXEL [Suspect]
     Indication: OVARIAN CANCER
  2. CARBOPLATIN (CARBOPLATIN) [Concomitant]

REACTIONS (6)
  - Pain in extremity [None]
  - Neuropathy peripheral [None]
  - Diarrhoea [None]
  - Nausea [None]
  - Vomiting [None]
  - Cystitis [None]
